FAERS Safety Report 7908910-5 (Version None)
Quarter: 2011Q4

REPORT INFORMATION
  Report Type: 
  Country: None (occurrence: None)
  Receive Date: 20111111
  Receipt Date: 20111101
  Transmission Date: 20120403
  Serious: Yes (Disabling)
  Sender: FDA-Public Use
  Company Number: JP-BRISTOL-MYERS SQUIBB COMPANY-16215188

PATIENT
  Age: 61 Year
  Sex: Female

DRUGS (2)
  1. VEPESID [Suspect]
     Indication: NEOPLASM MALIGNANT
  2. CISPLATIN [Suspect]
     Indication: NEOPLASM MALIGNANT

REACTIONS (2)
  - RAYNAUD'S PHENOMENON [None]
  - EXTREMITY NECROSIS [None]
